FAERS Safety Report 26214154 (Version 1)
Quarter: 2025Q4

REPORT INFORMATION
  Report Type: Spontaneous
  Country: US (occurrence: US)
  Receive Date: 20251230
  Receipt Date: 20251230
  Transmission Date: 20260117
  Serious: Yes (Hospitalization)
  Sender: AMGEN
  Company Number: US-AMGEN-USASP2025253574

PATIENT
  Age: 70 Year
  Sex: Male

DRUGS (4)
  1. PREDNISONE [Suspect]
     Active Substance: PREDNISONE
     Indication: Myasthenia gravis
     Dosage: UNK
     Route: 065
  2. RAVULIZUMAB [Concomitant]
     Active Substance: RAVULIZUMAB
  3. PYRIDOSTIGMINE [Concomitant]
     Active Substance: PYRIDOSTIGMINE
  4. APIXABAN [Concomitant]
     Active Substance: APIXABAN

REACTIONS (6)
  - Injury [Unknown]
  - Compression fracture [Unknown]
  - Ventricular tachycardia [Unknown]
  - Coronary artery aneurysm [Unknown]
  - Ventricular extrasystoles [Unknown]
  - Off label use [Unknown]
